FAERS Safety Report 6808753-X (Version None)
Quarter: 2010Q2

REPORT INFORMATION
  Report Type: 
  Country: None (occurrence: None)
  Receive Date: 20100630
  Receipt Date: 20090929
  Transmission Date: 20101027
  Serious: Yes (Hospitalization)
  Sender: FDA-Public Use
  Company Number: US-PFIZER INC-2009275792

PATIENT
  Sex: Female

DRUGS (4)
  1. XANAX [Suspect]
     Indication: DEPRESSION
     Dosage: UNK
     Route: 065
  2. XANAX [Suspect]
     Indication: ANXIETY
  3. HUMIRA [Suspect]
     Indication: PSORIASIS
     Dosage: 40 MG, 1 IN 2 WEEK
     Route: 065
     Dates: start: 20081030
  4. HUMIRA [Suspect]
     Indication: PSORIATIC ARTHROPATHY
     Dosage: ON HOLD FOR A PREVIOUS SINUS INFECTION

REACTIONS (5)
  - ANXIETY [None]
  - DEPRESSION [None]
  - OVERDOSE [None]
  - PAIN OF SKIN [None]
  - SINUSITIS [None]
